FAERS Safety Report 10367478 (Version 1)
Quarter: 2014Q1

REPORT INFORMATION
  Report Type: Spontaneous
  Country: US (occurrence: None)
  Receive Date: 20140306
  Receipt Date: 20140306
  Transmission Date: 20141002
  Serious: Yes (Hospitalization)
  Sender: FDA-Public Use
  Company Number: 163-21880-13071666

PATIENT
  Age: 82 Year
  Sex: Female

DRUGS (11)
  1. REVLIMID (LENALIDOMIDE) (15 MILLIGRAM, CAPSULES) [Suspect]
     Indication: PLASMA CELL MYELOMA
     Dosage: 15 MG, 21 IN 28 D, PO
     Route: 048
     Dates: start: 20111230
  2. CENTRUM SILVER (CENTRUM SILVER) [Concomitant]
  3. VELCADE (BORTEZOMIB) [Concomitant]
  4. FOLIVANE F (INTEGRA F) [Concomitant]
  5. INTEGRA PLUS (INTEGRA PLUS) [Concomitant]
  6. FUROSEMIDE (FUROSEMIDE) [Concomitant]
  7. PRILOSEC (OMEPRAZOLE) [Concomitant]
  8. DEXAMETHASONE (DEXAMETHASONE) [Concomitant]
  9. CRESTOR (ROSUVASTATIN) [Concomitant]
  10. AMLODIPINE BESYLATE (AMLODIPINE BESILATE) [Concomitant]
  11. ZOMETA (ZOLEDRONIC ACID) [Concomitant]

REACTIONS (5)
  - Nausea [None]
  - Vomiting [None]
  - Diarrhoea [None]
  - Dehydration [None]
  - Pneumonia [None]
